FAERS Safety Report 12820732 (Version 3)
Quarter: 2017Q4

REPORT INFORMATION
  Report Type: Report from Study
  Country: FR (occurrence: FR)
  Receive Date: 20161006
  Receipt Date: 20171201
  Transmission Date: 20180320
  Serious: Yes (Hospitalization)
  Sender: FDA-Public Use
  Company Number: FR-CELGENEUS-FRA-2016095331

PATIENT
  Age: 47 Year
  Sex: Male
  Weight: 73 kg

DRUGS (9)
  1. POMALIDOMIDE [Suspect]
     Active Substance: POMALIDOMIDE
     Indication: PLASMA CELL MYELOMA
     Route: 048
  2. POMALIDOMIDE [Suspect]
     Active Substance: POMALIDOMIDE
     Route: 065
  3. DEXAMETHASONE. [Suspect]
     Active Substance: DEXAMETHASONE
     Route: 065
  4. DEXAMETHASONE. [Suspect]
     Active Substance: DEXAMETHASONE
     Route: 065
  5. BORTEZOMIB [Suspect]
     Active Substance: BORTEZOMIB
     Indication: PLASMA CELL MYELOMA
     Route: 065
     Dates: start: 20110124, end: 20110811
  6. CYCLOPHOSPHAMIDE. [Concomitant]
     Active Substance: CYCLOPHOSPHAMIDE
     Indication: PLASMA CELL MYELOMA
     Route: 065
     Dates: start: 20140722, end: 20160424
  7. DEXAMETHASONE. [Suspect]
     Active Substance: DEXAMETHASONE
     Route: 065
     Dates: end: 201208
  8. REVLIMID [Suspect]
     Active Substance: LENALIDOMIDE
     Indication: PLASMA CELL MYELOMA
     Route: 048
     Dates: start: 20110124, end: 20120820
  9. DEXAMETHASONE. [Suspect]
     Active Substance: DEXAMETHASONE
     Indication: PLASMA CELL MYELOMA
     Route: 065
     Dates: start: 20110124, end: 20110812

REACTIONS (1)
  - Basal cell carcinoma [Recovered/Resolved]

NARRATIVE: CASE EVENT DATE: 20160617
